FAERS Safety Report 15730082 (Version 1)
Quarter: 2018Q4

REPORT INFORMATION
  Report Type: Spontaneous
  Country: US (occurrence: US)
  Receive Date: 20181216
  Receipt Date: 20181216
  Transmission Date: 20190205
  Serious: No
  Sender: FDA-Public Use
  Company Number: None

PATIENT
  Age: 65 Year
  Sex: Female
  Weight: 45 kg

DRUGS (4)
  1. VITAMIN B12 [Concomitant]
     Active Substance: CYANOCOBALAMIN
  2. BIOTENE FRESH MINT ORIGINAL NOS [Suspect]
     Active Substance: SODIUM FLUORIDE OR SODIUM MONOFLUOROPHOSPHATE
     Indication: DENTAL DISORDER PROPHYLAXIS
     Dates: start: 20181116, end: 20181212
  3. CALCIUM [Concomitant]
     Active Substance: CALCIUM
  4. VITAMIN D [Concomitant]
     Active Substance: CHOLECALCIFEROL

REACTIONS (5)
  - Pain in extremity [None]
  - Gait disturbance [None]
  - Foot deformity [None]
  - Muscle twitching [None]
  - Sleep disorder [None]

NARRATIVE: CASE EVENT DATE: 20181116
